FAERS Safety Report 12126583 (Version 8)
Quarter: 2017Q3

REPORT INFORMATION
  Report Type: Spontaneous
  Country: US (occurrence: US)
  Receive Date: 20160229
  Receipt Date: 20170829
  Transmission Date: 20171127
  Serious: Yes (Death, Hospitalization, Other)
  Sender: FDA-Public Use
  Company Number: US-PFIZER INC-2016117883

PATIENT
  Age: 82 Year
  Sex: Male
  Weight: 79.5 kg

DRUGS (67)
  1. ALBUTEROL. [Concomitant]
     Active Substance: ALBUTEROL
     Indication: CHRONIC OBSTRUCTIVE PULMONARY DISEASE
     Dosage: 90MCG, 2 INHALATIONS, EVERY 4 HOURS AS NEEDED
     Route: 055
  2. ALBUTEROL. [Concomitant]
     Active Substance: ALBUTEROL
     Dosage: UNK UNK, EVERY 4 HRS (2.5 MG/3 ML)
     Route: 055
  3. BUMEX [Concomitant]
     Active Substance: BUMETANIDE
     Dosage: 1 MG, UNK (1 MG IVIN ER)
     Route: 042
  4. COENZYME Q10 [Concomitant]
     Active Substance: UBIDECARENONE
     Dosage: 100 MG, 1X/DAY
  5. FLUNISOLIDE. [Concomitant]
     Active Substance: FLUNISOLIDE
     Dosage: 250MCG/ACTUATION AS NEEDED
     Route: 055
  6. POTASSIUM CHLORIDE. [Concomitant]
     Active Substance: POTASSIUM CHLORIDE
     Dosage: 20 MEQ, 3X/DAY
     Route: 048
  7. TERAZOSIN [Concomitant]
     Active Substance: TERAZOSIN\TERAZOSIN HYDROCHLORIDE
     Dosage: 2 MG, 2X/DAY
     Route: 048
  8. WARFARIN [Concomitant]
     Active Substance: WARFARIN
     Indication: ANTICOAGULANT THERAPY
     Dosage: 5 MG, ON MONDAY^S HE TAKES 1
  9. METOLAZONE. [Concomitant]
     Active Substance: METOLAZONE
     Dosage: 2.5 MG, AS NEEDED
  10. NASONEX [Concomitant]
     Active Substance: MOMETASONE FUROATE
     Dosage: UNK, AS NEEDED
  11. ULORIC [Concomitant]
     Active Substance: FEBUXOSTAT
     Dosage: 80 MG, 1X/DAY
  12. DOCUSATE SODIUM. [Concomitant]
     Active Substance: DOCUSATE SODIUM
     Dosage: 100 MG, DAILY
     Route: 048
  13. ZOFRAN [Concomitant]
     Active Substance: ONDANSETRON HYDROCHLORIDE
     Dosage: UNK, AS NEEDED (4 MG, 2 ML, IV PUSH, Q30MIN, PRN)
  14. UBIQUINONE [Concomitant]
     Active Substance: UBIDECARENONE
     Dosage: 100 MG, DAILY
     Route: 048
  15. DULCOLAX NOS [Concomitant]
     Active Substance: BISACODYL OR DOCUSATE SODIUM
     Dosage: 5 MG, AS NEEDED , (DAILY, PRN, LAXATIVE)
     Route: 048
  16. LASIX [Concomitant]
     Active Substance: FUROSEMIDE
     Dosage: 40 MG, SINGLE
     Route: 041
  17. ALBUTEROL. [Concomitant]
     Active Substance: ALBUTEROL
     Dosage: UNK, (90 MCG/INH, INHALATION AEROSOL)
     Route: 055
  18. FERROUS SULFIDE [Concomitant]
     Active Substance: FERROUS SULFIDE
     Dosage: 2 DF, 1X/DAY
  19. FERROUS SULFATE. [Concomitant]
     Active Substance: FERROUS SULFATE
     Dosage: 1300 MG, DAILY (650 MG, 2 TABS, ORAL)
     Route: 048
  20. FERROUS SULFATE. [Concomitant]
     Active Substance: FERROUS SULFATE
     Dosage: 325 MG, DAILY
     Route: 048
  21. METOLAZONE. [Concomitant]
     Active Substance: METOLAZONE
     Dosage: 2.5 MG, DAILY
     Route: 048
  22. KEFLEX [Concomitant]
     Active Substance: CEPHALEXIN
     Dosage: 500 MG, 2X/DAY (1 CAPS, Q12HR)
     Route: 048
  23. OMEPRAZOLE. [Concomitant]
     Active Substance: OMEPRAZOLE
     Dosage: 10 MG, 3X/DAY
  24. POTASSIUM CHLORIDE. [Concomitant]
     Active Substance: POTASSIUM CHLORIDE
     Dosage: 10 MEQ, 3X/DAY
  25. WARFARIN [Concomitant]
     Active Substance: WARFARIN
     Dosage: 7.5 MG, UNK (ORAL, MON/WE/FR)
     Route: 048
  26. COLCHICINE. [Concomitant]
     Active Substance: COLCHICINE
     Dosage: 0.6 MG, AS NEEDED
     Route: 048
  27. SENOKOT [Concomitant]
     Active Substance: SENNOSIDES
     Dosage: 8.8 MG, AS NEEDED, (DAILY, PRN)
     Route: 048
  28. ALBUTEROL. [Concomitant]
     Active Substance: ALBUTEROL
     Dosage: 180 UG, AS NEEDED,  (2 PUFFS, INHALATION, Q4HR, PRN)
     Route: 055
  29. COENZYME Q10 [Concomitant]
     Active Substance: UBIDECARENONE
     Dosage: 100 MG, DAILY
     Route: 048
  30. LOSARTAN. [Concomitant]
     Active Substance: LOSARTAN
     Dosage: 50 MG, 1X/DAY
  31. ZAROXOLYN [Concomitant]
     Active Substance: METOLAZONE
     Dosage: 2.5 MG, 2X/DAY
  32. FERROUS SULFATE. [Concomitant]
     Active Substance: FERROUS SULFATE
     Dosage: 650 MG, DAILY(65 MG ELEMENTAL IRON), (2 TABS)
     Route: 048
  33. ULORIC [Concomitant]
     Active Substance: FEBUXOSTAT
     Dosage: 80 MG, DAILY
     Route: 048
  34. FEBUXOSTAT. [Concomitant]
     Active Substance: FEBUXOSTAT
     Dosage: 80 MG, DAILY
     Route: 048
  35. COLACE [Concomitant]
     Active Substance: DOCUSATE SODIUM
     Dosage: 100 MG, DAILY
     Route: 048
  36. KLOR-CON M20 [Concomitant]
     Active Substance: POTASSIUM CHLORIDE
     Dosage: 80 MEQ, 3X/DAY, (2 TABS)
     Route: 048
  37. BUMEX [Concomitant]
     Active Substance: BUMETANIDE
     Dosage: 4 MG, 3X/DAY (4MG THREE TIMES A DAY)
     Route: 048
  38. POTASSIUM CHLORIDE. [Concomitant]
     Active Substance: POTASSIUM CHLORIDE
     Dosage: 40 UNK, UNK
     Route: 048
  39. ISOSORBIDE MONONITRATE. [Concomitant]
     Active Substance: ISOSORBIDE MONONITRATE
     Dosage: 30 MG, 1X/DAY
  40. PROVENTIL HFA [Concomitant]
     Active Substance: ALBUTEROL SULFATE
     Dosage: 180 UG, AS NEEDED (2 PUFFS, Q4HR, PRN)
     Route: 055
  41. SPIRIVA [Concomitant]
     Active Substance: TIOTROPIUM BROMIDE MONOHYDRATE
     Dosage: UNK, DAILY(2.5 MCG/INH, 2 PUFFS)
     Route: 055
  42. ZOFRAN ODT [Concomitant]
     Active Substance: ONDANSETRON HYDROCHLORIDE
     Dosage: 4 MG, AS NEEDED
     Route: 048
  43. BUMEX [Concomitant]
     Active Substance: BUMETANIDE
     Dosage: UNK
  44. COUAMDIN [Concomitant]
     Dosage: AS DIRECTED
     Route: 048
  45. BUMETANIDE. [Concomitant]
     Active Substance: BUMETANIDE
     Dosage: 2 MG, 3X/DAY
     Route: 048
  46. ZOFRAN [Concomitant]
     Active Substance: ONDANSETRON HYDROCHLORIDE
     Dosage: UNK UNK, AS NEEDED (4 MG, 2 ML, IV PUSH, Q8HR, PRN)
  47. PROTONIX [Concomitant]
     Active Substance: PANTOPRAZOLE SODIUM
     Dosage: 40 MG, DAILY
     Route: 048
  48. NORCO [Concomitant]
     Active Substance: ACETAMINOPHEN\HYDROCODONE BITARTRATE
     Dosage: 1 DF, AS NEEDED [NORCO 5 MG-325 MG] (1 TABS, ORAL, Q4HR, PRN)
     Route: 048
  49. AMBRISENTAN [Suspect]
     Active Substance: AMBRISENTAN
     Dosage: UNK
     Dates: end: 201703
  50. ALBUTEROL. [Concomitant]
     Active Substance: ALBUTEROL
     Dosage: 0.5 ML, EVERY 4 HRS
     Route: 055
  51. BUDESONIDE. [Concomitant]
     Active Substance: BUDESONIDE
     Dosage: 4.5 MG, UNK
  52. BUMEX [Concomitant]
     Active Substance: BUMETANIDE
     Indication: CARDIAC FAILURE CONGESTIVE
     Dosage: 1 MG, 3X/DAY
     Route: 048
  53. TIOTROPIUM BROMIDE [Concomitant]
     Active Substance: TIOTROPIUM BROMIDE
     Dosage: UNK
     Route: 055
  54. WARFARIN [Concomitant]
     Active Substance: WARFARIN
     Dosage: 7.5 MG, DAILY[THE REST OF THE WEEKS HE TAKES 1 1/2 DAILY (7.5 MG DAILY)]
  55. WARFARIN [Concomitant]
     Active Substance: WARFARIN
     Dosage: 5 MG, UNK (ORAL, SUN/TU/TH/SA)
     Route: 048
  56. TIOTROPIUM [Concomitant]
     Active Substance: TIOTROPIUM
     Dosage: 18 UG, DAILY
     Route: 055
  57. ACETAMINOPHEN. [Concomitant]
     Active Substance: ACETAMINOPHEN
     Dosage: 1300 MG, AS NEEDED (650 MG, 2 TABS, Q4HR, PRN)
     Route: 048
  58. MIRALAX [Concomitant]
     Active Substance: POLYETHYLENE GLYCOL 3350
     Dosage: 1 PACK DAILY AS NEEDED
     Route: 048
  59. REGLAN [Concomitant]
     Active Substance: METOCLOPRAMIDE HYDROCHLORIDE
     Dosage: 10 MG, 2 ML, Q6HR, PRN
     Route: 040
  60. FERROUS FUMARATE [Concomitant]
     Active Substance: FERROUS FUMARATE
     Dosage: 648 MG, DAILY, [(106 MG ELEMENTAL IRON), 2 TABS]
     Route: 048
  61. REVATIO [Suspect]
     Active Substance: SILDENAFIL CITRATE
     Indication: PULMONARY ARTERIAL HYPERTENSION
     Dosage: 20 MG, 3X/DAY
     Route: 048
     Dates: start: 201508, end: 20170418
  62. OMEPRAZOLE. [Concomitant]
     Active Substance: OMEPRAZOLE
     Dosage: 20 MG, DAILY
     Route: 048
  63. FERROUS SULFATE. [Concomitant]
     Active Substance: FERROUS SULFATE
     Dosage: UNK, 1X/DAY
  64. PROVENTIL HFA [Concomitant]
     Active Substance: ALBUTEROL SULFATE
     Dosage: UNK, AS NEEDED (2 PUFFS, Q4HR) (PROVENTIL HFA 90 MCG/INH)
     Route: 055
  65. SPIRIVA [Concomitant]
     Active Substance: TIOTROPIUM BROMIDE MONOHYDRATE
     Dosage: 18 UG, 1X/DAY
  66. SYMBICORT [Concomitant]
     Active Substance: BUDESONIDE\FORMOTEROL FUMARATE DIHYDRATE
     Dosage: UNK UNK, 2X/DAY 2 PUFFS, TWICE A DAY [BUDESONIDE: 160MCG; FORMOTEROL FUMARATE: 4.5MCG/INH] BID
     Route: 055
  67. SENOKOT-S [Concomitant]
     Active Substance: DOCUSATE SODIUM\SENNOSIDES
     Dosage: 50 MG-8.6 MG, DAILY, PRN
     Route: 048

REACTIONS (15)
  - Condition aggravated [Fatal]
  - Cardiac failure [Unknown]
  - Troponin increased [Unknown]
  - Fractured ischium [Recovering/Resolving]
  - Dyspnoea [Unknown]
  - Weight increased [Unknown]
  - Acetabulum fracture [Recovering/Resolving]
  - Fall [Unknown]
  - Oedema [Unknown]
  - Pericardial effusion [Recovered/Resolved]
  - Cardiac failure congestive [Fatal]
  - Peripheral swelling [Unknown]
  - Ventricular hypokinesia [Unknown]
  - Pleural effusion [Unknown]
  - Drug ineffective for unapproved indication [Unknown]

NARRATIVE: CASE EVENT DATE: 20151229
